FAERS Safety Report 4540541-X (Version None)
Quarter: 2004Q4

REPORT INFORMATION
  Report Type: 
  Country: None (occurrence: None)
  Receive Date: 20041228
  Receipt Date: 20041228
  Transmission Date: 20050328
  Serious: Yes (Life-Threatening, Hospitalization)
  Sender: FDA-Public Use
  Company Number: None

PATIENT
  Sex: Male
  Weight: 60 kg

DRUGS (2)
  1. IRINOTECAN [Suspect]
     Indication: METASTATIC NEOPLASM
     Dosage: 50 MG/M2
     Dates: start: 20040927, end: 20041004
  2. CISPLATIN [Suspect]
     Indication: METASTATIC NEOPLASM
     Dosage: 30 MG/M2
     Dates: start: 20040927, end: 20041004

REACTIONS (6)
  - DEHYDRATION [None]
  - FISTULA [None]
  - FLUID INTAKE REDUCED [None]
  - HAEMOPTYSIS [None]
  - PERFORMANCE STATUS DECREASED [None]
  - WEIGHT DECREASED [None]
